FAERS Safety Report 23484108 (Version 5)
Quarter: 2024Q2

REPORT INFORMATION
  Report Type: Report from Study
  Country: US (occurrence: US)
  Receive Date: 20240206
  Receipt Date: 20240527
  Transmission Date: 20240716
  Serious: Yes (Hospitalization)
  Sender: FDA-Public Use
  Company Number: US-ACADIA PHARMACEUTICALS INC.-ACA-2024-PIM-000112

PATIENT
  Age: 74 Year
  Sex: Male

DRUGS (20)
  1. NUPLAZID [Suspect]
     Active Substance: PIMAVANSERIN TARTRATE
     Indication: Parkinson^s disease
     Dosage: 34 MILLIGRAM, QD
     Route: 048
     Dates: start: 20220609
  2. NUPLAZID [Suspect]
     Active Substance: PIMAVANSERIN TARTRATE
     Dosage: 34 MILLIGRAM QD
     Route: 048
     Dates: start: 202206
  3. QUETIAPINE FUMARATE [Concomitant]
     Active Substance: QUETIAPINE FUMARATE
  4. CLONAZEPAM [Concomitant]
     Active Substance: CLONAZEPAM
  5. TAMSULOSIN [Concomitant]
     Active Substance: TAMSULOSIN
  6. IBUPROFEN [Concomitant]
     Active Substance: IBUPROFEN
  7. MIRTAZAPINE [Concomitant]
     Active Substance: MIRTAZAPINE
  8. PANTOPRAZOLE [Concomitant]
     Active Substance: PANTOPRAZOLE
     Dosage: UNK
     Dates: start: 20240105
  9. RIVASTIGMINE [Concomitant]
     Active Substance: RIVASTIGMINE
  10. OXYBUTYNIN [Concomitant]
     Active Substance: OXYBUTYNIN\OXYBUTYNIN CHLORIDE
  11. NITROGLYCERIN [Concomitant]
     Active Substance: NITROGLYCERIN
  12. FIBERCON [Concomitant]
     Active Substance: CALCIUM POLYCARBOPHIL
  13. VIAGRA [Concomitant]
     Active Substance: SILDENAFIL CITRATE
  14. RASAGILINE [Concomitant]
     Active Substance: RASAGILINE\RASAGILINE MESYLATE
  15. COLCHICINE [Concomitant]
     Active Substance: COLCHICINE
  16. STALEVO [Concomitant]
     Active Substance: CARBIDOPA\ENTACAPONE\LEVODOPA
  17. ROPINIROLE [Concomitant]
     Active Substance: ROPINIROLE
  18. DUOPA [Concomitant]
     Active Substance: CARBIDOPA\LEVODOPA
  19. INBRIJA [Concomitant]
     Active Substance: LEVODOPA
  20. LISINOPRIL [Concomitant]
     Active Substance: LISINOPRIL

REACTIONS (10)
  - Head injury [Recovered/Resolved]
  - Medical device change [Unknown]
  - Device dislocation [Unknown]
  - Device occlusion [Unknown]
  - Skin laceration [Unknown]
  - Fall [Recovered/Resolved]
  - Somnolence [Unknown]
  - Device dislocation [Unknown]
  - Medical device change [Unknown]
  - Parkinson^s disease [Unknown]

NARRATIVE: CASE EVENT DATE: 20240101
